FAERS Safety Report 12160708 (Version 9)
Quarter: 2016Q2

REPORT INFORMATION
  Report Type: Spontaneous
  Country: GB (occurrence: GB)
  Receive Date: 20160308
  Receipt Date: 20160627
  Transmission Date: 20160815
  Serious: Yes (Other)
  Sender: FDA-Public Use
  Company Number: GB-ROCHE-1716547

PATIENT
  Sex: Female

DRUGS (3)
  1. ZOMETA [Suspect]
     Active Substance: ZOLEDRONIC ACID
     Indication: PRODUCT USED FOR UNKNOWN INDICATION
     Route: 065
  2. PERTUZUMAB [Suspect]
     Active Substance: PERTUZUMAB
     Indication: PRODUCT USED FOR UNKNOWN INDICATION
     Dosage: DOSE: 450 MG IN 264 ML
     Route: 042
  3. HERCEPTIN [Suspect]
     Active Substance: TRASTUZUMAB
     Indication: PRODUCT USED FOR UNKNOWN INDICATION
     Route: 058

REACTIONS (20)
  - Fatigue [Not Recovered/Not Resolved]
  - Pyrexia [Recovering/Resolving]
  - Muscular weakness [Unknown]
  - Alopecia [Not Recovered/Not Resolved]
  - Decreased appetite [Unknown]
  - Skin ulcer [Unknown]
  - Joint swelling [Not Recovered/Not Resolved]
  - Neuropathy peripheral [Not Recovered/Not Resolved]
  - Asthenia [Unknown]
  - Anxiety [Unknown]
  - Nausea [Unknown]
  - Oxygen saturation decreased [Unknown]
  - Contusion [Not Recovered/Not Resolved]
  - Joint range of motion decreased [Unknown]
  - Erythema [Unknown]
  - Dyspnoea [Unknown]
  - Diarrhoea [Not Recovered/Not Resolved]
  - Fatigue [Unknown]
  - Urinary tract infection [Unknown]
  - Dizziness [Unknown]
